FAERS Safety Report 8809647 (Version 1)
Quarter: 2012Q4

REPORT INFORMATION
  Report Type: 
  Country: US (occurrence: US)
  Receive Date: 20120926
  Receipt Date: 20120926
  Transmission Date: 20130627
  Serious: Yes (Death, Other)
  Sender: FDA-Public Use
  Company Number: US-ROCHE-1131360

PATIENT
  Sex: Female

DRUGS (9)
  1. AVASTIN [Suspect]
     Indication: BREAST CANCER FEMALE
     Route: 065
  2. XELODA [Suspect]
     Indication: BREAST CANCER FEMALE
     Route: 065
  3. TAXOTERE [Concomitant]
  4. NAVELBINE [Concomitant]
  5. GEMZAR [Concomitant]
  6. DOXIL (UNITED STATES) [Concomitant]
  7. CARBOPLATIN [Concomitant]
  8. CAMPTOSAR [Concomitant]
  9. ABRAXANE [Concomitant]

REACTIONS (2)
  - Disease progression [Fatal]
  - Drug ineffective [Unknown]
